FAERS Safety Report 7877826-5 (Version None)
Quarter: 2011Q4

REPORT INFORMATION
  Report Type: 
  Country: None (occurrence: None)
  Receive Date: 20111031
  Receipt Date: 20111031
  Transmission Date: 20120403
  Serious: Yes (Other)
  Sender: FDA-Public Use
  Company Number: None

PATIENT
  Age: 38 Year
  Sex: Female
  Weight: 58.967 kg

DRUGS (1)
  1. ADVAIR DISKUS 100/50 [Suspect]
     Indication: ASTHMA
     Dosage: ONE PUFF
     Dates: start: 20100801, end: 20111027

REACTIONS (6)
  - VARICOSE VEIN [None]
  - DYSPHONIA [None]
  - SKIN ATROPHY [None]
  - ALOPECIA [None]
  - DEAFNESS [None]
  - TINNITUS [None]
